FAERS Safety Report 13060537 (Version 2)
Quarter: 2016Q4

REPORT INFORMATION
  Report Type: Not Available
  Country: JP (occurrence: JP)
  Receive Date: 20161224
  Receipt Date: 20161224
  Transmission Date: 20170207
  Serious: Yes (Other)
  Sender: FDA-Public Use
  Company Number: JP-LUPIN PHARMACEUTICALS INC.-2016-04909

PATIENT
  Age: 36 Year
  Sex: Male

DRUGS (10)
  1. AZELNIDIPINE TABLET 16 MG [NP] [Concomitant]
     Indication: HYPERTENSION
     Route: 048
     Dates: start: 20160123
  2. QUETIAPINE TABLET 25 MG [AMEL] [Suspect]
     Active Substance: QUETIAPINE
     Route: 048
  3. QUETIAPINE TABLET 100 MG [AMEL] [Suspect]
     Active Substance: QUETIAPINE
     Indication: SCHIZOPHRENIA
     Route: 048
     Dates: start: 20160607, end: 20160628
  4. IMIDAPRIL TABLET 5 MG [OHARA] [Concomitant]
     Indication: HYPERTENSION
     Route: 048
     Dates: start: 20160619
  5. SULPIRIDE TABLET 50 MG [AMEL] [Concomitant]
     Active Substance: SULPIRIDE
     Indication: SCHIZOPHRENIA
     Route: 048
     Dates: start: 20140802
  6. RISPERIDONE TABLET 1 MG [YOSHITOMI] [Concomitant]
     Active Substance: RISPERIDONE
     Indication: SCHIZOPHRENIA
     Route: 048
     Dates: start: 20160524
  7. OMEPRAZOLE TABLET 20 MG [NICHI-IKO] [Concomitant]
     Indication: GASTRITIS
     Route: 048
     Dates: start: 20140816
  8. QUETIAPINE TABLET 25 MG [AMEL] [Suspect]
     Active Substance: QUETIAPINE
     Route: 048
     Dates: start: 20160426
  9. FLUNITRAZEPAM 1 MG [AMEL] [Concomitant]
     Indication: INSOMNIA
     Route: 048
     Dates: start: 20161021
  10. QUETIAPINE TABLET 25 MG [AMEL] [Suspect]
     Active Substance: QUETIAPINE
     Indication: SCHIZOPHRENIA
     Dosage: BEFORE SLEEPING
     Route: 048
     Dates: start: 20140718

REACTIONS (1)
  - Muscle spasms [Recovered/Resolved]

NARRATIVE: CASE EVENT DATE: 201606
